FAERS Safety Report 10411457 (Version 3)
Quarter: 2015Q1

REPORT INFORMATION
  Report Type: Spontaneous
  Country: GB (occurrence: GB)
  Receive Date: 20140827
  Receipt Date: 20150225
  Transmission Date: 20150720
  Serious: Yes (Other)
  Sender: FDA-Public Use
  Company Number: GB-ROCHE-1453031

PATIENT
  Sex: Female

DRUGS (1)
  1. HERCEPTIN [Suspect]
     Active Substance: TRASTUZUMAB
     Indication: PRODUCT USED FOR UNKNOWN INDICATION
     Route: 065

REACTIONS (16)
  - Breast mass [Unknown]
  - Mobility decreased [Unknown]
  - Feeling abnormal [Unknown]
  - Gait disturbance [Unknown]
  - Wound [Unknown]
  - Fatigue [Not Recovered/Not Resolved]
  - Headache [Not Recovered/Not Resolved]
  - Dry skin [Unknown]
  - Muscular weakness [Unknown]
  - Balance disorder [Unknown]
  - Asthenia [Unknown]
  - Head injury [Unknown]
  - Fall [Unknown]
  - Impaired healing [Unknown]
  - Back pain [Not Recovered/Not Resolved]
  - Hypoaesthesia [Unknown]
